FAERS Safety Report 24548200 (Version 3)
Quarter: 2025Q1

REPORT INFORMATION
  Report Type: Spontaneous
  Country: CZ (occurrence: CZ)
  Receive Date: 20241025
  Receipt Date: 20250117
  Transmission Date: 20250408
  Serious: Yes (Hospitalization, Other)
  Sender: ALEXION PHARMACEUTICALS
  Company Number: CZ-AstraZeneca-CH-00728703A

PATIENT
  Age: 54 Year

DRUGS (20)
  1. OLAPARIB [Suspect]
     Active Substance: OLAPARIB
     Indication: Prostate cancer metastatic
     Dosage: 300 MILLIGRAM, BID; 2-0-2
     Route: 065
  2. OLAPARIB [Suspect]
     Active Substance: OLAPARIB
     Dosage: 300 MILLIGRAM, BID; 2-0-2
     Route: 065
  3. OLAPARIB [Suspect]
     Active Substance: OLAPARIB
     Dosage: 300 MILLIGRAM, BID; 2-0-2
     Route: 065
  4. OLAPARIB [Suspect]
     Active Substance: OLAPARIB
     Dosage: 300 MILLIGRAM, BID; 2-0-2
     Route: 065
  5. OLAPARIB [Suspect]
     Active Substance: OLAPARIB
     Route: 065
  6. OLAPARIB [Suspect]
     Active Substance: OLAPARIB
     Route: 065
  7. OLAPARIB [Suspect]
     Active Substance: OLAPARIB
     Route: 065
  8. OLAPARIB [Suspect]
     Active Substance: OLAPARIB
     Route: 065
  9. OLAPARIB [Suspect]
     Active Substance: OLAPARIB
     Route: 065
  10. OLAPARIB [Suspect]
     Active Substance: OLAPARIB
     Route: 065
  11. OLAPARIB [Suspect]
     Active Substance: OLAPARIB
     Route: 065
  12. OLAPARIB [Suspect]
     Active Substance: OLAPARIB
     Route: 065
  13. OLAPARIB [Suspect]
     Active Substance: OLAPARIB
     Route: 065
  14. OLAPARIB [Suspect]
     Active Substance: OLAPARIB
     Route: 065
  15. OLAPARIB [Suspect]
     Active Substance: OLAPARIB
     Route: 065
  16. OLAPARIB [Suspect]
     Active Substance: OLAPARIB
     Route: 065
  17. ABIRATERONE [Concomitant]
     Active Substance: ABIRATERONE
     Indication: Prostate cancer metastatic
     Dosage: 1000 MILLIGRAM, QD
     Route: 065
  18. ABIRATERONE [Concomitant]
     Active Substance: ABIRATERONE
     Dosage: 1000 MILLIGRAM, QD
     Route: 065
  19. PREDNISONE [Concomitant]
     Active Substance: PREDNISONE
     Indication: Prostate cancer metastatic
     Dosage: 5 MILLIGRAM, QD
     Route: 065
  20. PREDNISONE [Concomitant]
     Active Substance: PREDNISONE
     Dosage: 5 MILLIGRAM, QD
     Route: 065

REACTIONS (3)
  - Haematotoxicity [Recovered/Resolved]
  - Anaemia [Recovered/Resolved]
  - Nausea [Recovered/Resolved]
